FAERS Safety Report 11836374 (Version 2)
Quarter: 2016Q1

REPORT INFORMATION
  Report Type: Spontaneous
  Country: GB (occurrence: GB)
  Receive Date: 20151215
  Receipt Date: 20160113
  Transmission Date: 20160525
  Serious: Yes (Other)
  Sender: FDA-Public Use
  Company Number: GB-PFIZER INC-2015437597

PATIENT
  Age: 62 Year
  Sex: Male

DRUGS (1)
  1. CAVERJECT [Suspect]
     Active Substance: ALPROSTADIL
     Indication: ERECTILE DYSFUNCTION
     Dosage: 10 UG, UNK
     Dates: start: 20151208, end: 20151208

REACTIONS (5)
  - Penile pain [Recovered/Resolved]
  - Penile haemorrhage [Recovered/Resolved]
  - Dizziness [Recovered/Resolved]
  - Penile burning sensation [Recovered/Resolved]
  - Penile erythema [Recovered/Resolved]

NARRATIVE: CASE EVENT DATE: 20151208
